FAERS Safety Report 19951982 (Version 3)
Quarter: 2022Q1

REPORT INFORMATION
  Report Type: Spontaneous
  Country: DE (occurrence: DE)
  Receive Date: 20211013
  Receipt Date: 20220301
  Transmission Date: 20220423
  Serious: Yes (Hospitalization, Other)
  Sender: FDA-Public Use
  Company Number: DE-ADRED-06542-01

PATIENT
  Age: 95 Year
  Sex: Male

DRUGS (24)
  1. METOPROLOL [Suspect]
     Active Substance: METOPROLOL
     Indication: Product used for unknown indication
     Dosage: 47.5 MILLIGRAM, MIX-UP, TABLETS
     Route: 048
  2. NITRENDIPINE [Suspect]
     Active Substance: NITRENDIPINE
     Indication: Product used for unknown indication
     Dosage: 20 MILLIGRAM, MIX-UP, TABLETS
     Route: 048
  3. RAMIPRIL [Suspect]
     Active Substance: RAMIPRIL
     Indication: Product used for unknown indication
     Dosage: 5 MILLIGRAM, MIX-UP, TABLETS
     Route: 048
  4. SPIRONOLACTONE [Concomitant]
     Active Substance: SPIRONOLACTONE
     Dosage: 50 MILLIGRAM 0.5-0-0-0, TABLET
     Route: 048
  5. SPIRONOLACTONE [Concomitant]
     Active Substance: SPIRONOLACTONE
     Dosage: 0.5 DF, QD (50 MG, 0.5-0-0-0, TABLETS )
     Route: 048
  6. MELPERONE [Concomitant]
     Active Substance: MELPERONE
     Dosage: 25 MILLIGRAM, 0-0-1-0, TABLET
     Route: 048
  7. MELPERONE [Concomitant]
     Active Substance: MELPERONE
     Dosage: 25 MILLIGRAM, AS NEEDED, TABLETS
     Route: 048
  8. MELPERONE [Concomitant]
     Active Substance: MELPERONE
     Dosage: 1 DF, QD (25 MG, 0-0-1-0, TABLETS)
     Route: 048
  9. SULFAMETHOXAZOLE;TRIMIPRAMINE [Concomitant]
     Dosage: 960 MILLIGRAM, 1-0-1-0, TABLET
     Route: 048
  10. SULFAMETHOXAZOLE;TRIMIPRAMINE [Concomitant]
     Dosage: 2 DF, BID (960 MG, 1-0-1-0, TABLETS)
     Route: 048
  11. METOCLOPRAMIDE [Concomitant]
     Active Substance: METOCLOPRAMIDE
     Dosage: 10 MILLIGRAM, AS NEEDED, TABLETS
     Route: 048
  12. EMPAGLIFLOZIN [Concomitant]
     Active Substance: EMPAGLIFLOZIN
     Dosage: 10 MILLIGRAM 1-0-0-0, TABLET
     Route: 048
  13. EMPAGLIFLOZIN [Concomitant]
     Active Substance: EMPAGLIFLOZIN
     Dosage: 1 DF, QD (10 MG, 1-0-0-0, TABLETS)
     Route: 048
  14. HERBALS\PLANTAGO OVATA SEED [Concomitant]
     Active Substance: HERBALS\PLANTAGO OVATA SEED
     Dosage: UNK, PRN (IF NECESSARY, GRANULES)
     Route: 048
  15. SACCHAROMYCES CEREVISIAE [Concomitant]
     Active Substance: SACCHAROMYCES CEREVISIAE
     Dosage: 50 MILLIGRAM, AS NEEDED, TABLETS
     Route: 048
  16. MEMANTINE [Concomitant]
     Active Substance: MEMANTINE
     Dosage: 10 MILLIGRAM, 1-0-0-0, TABLET
     Route: 048
  17. MEMANTINE [Concomitant]
     Active Substance: MEMANTINE
     Dosage: 1 DF, QD (10 MG, 1-0-0-0, TABLETS)
     Route: 048
  18. METAMIZOL [Concomitant]
     Active Substance: METAMIZOLE SODIUM
     Dosage: QD (20 DROPS, UP TO 60 DROPS DAILY, TROPFEN)
     Route: 048
  19. TORSEMIDE [Concomitant]
     Active Substance: TORSEMIDE
     Dosage: 10 MILLIGRAM, 1-0-0-0, TABLET
     Route: 048
  20. TORSEMIDE [Concomitant]
     Active Substance: TORSEMIDE
     Dosage: 1 DF, QD (10 MG, 1-0-0-0, TABLETS)
     Route: 048
  21. ASPIRIN [Concomitant]
     Active Substance: ASPIRIN
     Dosage: 100 MILLIGRAM, 0-1-0-0, TABLET
     Route: 048
  22. ASPIRIN [Concomitant]
     Active Substance: ASPIRIN
     Dosage: 1 DF, QD (100 MG, 0-1-0-0, TABLETS)
     Route: 048
  23. ATORVASTATIN [Concomitant]
     Active Substance: ATORVASTATIN
     Dosage: 10 MILLIGRAM, 0-0-1-0, TABLET
     Route: 048
  24. ATORVASTATIN [Concomitant]
     Active Substance: ATORVASTATIN
     Dosage: 1 DF, QD (10 MG, 0-0-1-0, TABLETS)
     Route: 048

REACTIONS (4)
  - Bradycardia [Unknown]
  - Hypotension [Unknown]
  - Wrong product administered [Unknown]
  - Intentional product misuse [Unknown]

NARRATIVE: CASE EVENT DATE: 20210412
